FAERS Safety Report 10896978 (Version 1)
Quarter: 2015Q1

REPORT INFORMATION
  Report Type: Spontaneous
  Country: QA (occurrence: QA)
  Receive Date: 20150309
  Receipt Date: 20150309
  Transmission Date: 20150721
  Serious: Yes (Other)
  Sender: FDA-Public Use
  Company Number: QA-MERCK-1503QAT002278

PATIENT
  Age: 47 Year
  Sex: Male

DRUGS (1)
  1. ERTAPENEM SODIUM [Suspect]
     Active Substance: ERTAPENEM SODIUM
     Indication: ENDOPHTHALMITIS
     Dosage: UNK
     Route: 042

REACTIONS (2)
  - Blindness unilateral [Unknown]
  - Drug ineffective [Unknown]
